FAERS Safety Report 11075688 (Version 1)
Quarter: 2015Q2

REPORT INFORMATION
  Report Type: Spontaneous
  Country: NZ (occurrence: NZ)
  Receive Date: 20150429
  Receipt Date: 20150429
  Transmission Date: 20150821
  Serious: Yes (Other)
  Sender: FDA-Public Use
  Company Number: NZ-BAXTER-2015BAX022053

PATIENT
  Age: 55 Year

DRUGS (8)
  1. SODIUM CHLORIDE, 0.9%, SOLUTION FOR INFUSION [Suspect]
     Active Substance: SODIUM CHLORIDE
     Route: 042
  2. PACLITAXEL. [Suspect]
     Active Substance: PACLITAXEL
     Indication: PRODUCT USED FOR UNKNOWN INDICATION
     Route: 042
  3. SODIUM CHLORIDE, 0.9%, SOLUTION FOR INFUSION [Suspect]
     Active Substance: SODIUM CHLORIDE
     Indication: PRODUCT USED FOR UNKNOWN INDICATION
     Route: 042
  4. SODIUM CHLORIDE, 0.9%, SOLUTION FOR INFUSION [Suspect]
     Active Substance: SODIUM CHLORIDE
     Route: 042
  5. SODIUM CHLORIDE, 0.9%, SOLUTION FOR INFUSION [Suspect]
     Active Substance: SODIUM CHLORIDE
     Route: 042
  6. PACLITAXEL. [Suspect]
     Active Substance: PACLITAXEL
     Route: 042
  7. PACLITAXEL. [Suspect]
     Active Substance: PACLITAXEL
     Route: 042
  8. PACLITAXEL. [Suspect]
     Active Substance: PACLITAXEL
     Route: 042

REACTIONS (2)
  - Dyspnoea [Recovered/Resolved]
  - Flushing [Recovered/Resolved]

NARRATIVE: CASE EVENT DATE: 20150210
